FAERS Safety Report 13582623 (Version 2)
Quarter: 2017Q2

REPORT INFORMATION
  Report Type: Report from Study
  Country: None (occurrence: LB)
  Receive Date: 20170525
  Receipt Date: 20170608
  Transmission Date: 20170830
  Serious: Yes (Other)
  Sender: FDA-Public Use
  Company Number: LB-ABBVIE-17P-093-1982178-00

PATIENT
  Age: 52 Year
  Sex: Male
  Weight: 95 kg

DRUGS (5)
  1. EXVIERA [Suspect]
     Active Substance: DASABUVIR
     Indication: HEPATIC CIRRHOSIS
  2. VIEKIRAX [Suspect]
     Active Substance: OMBITASVIR\PARITAPREVIR\RITONAVIR
     Indication: HEPATIC CIRRHOSIS
  3. RIBAVIRIN. [Concomitant]
     Active Substance: RIBAVIRIN
     Indication: HEPATITIS C
     Dosage: 12 WEEKS TREATMENT
     Route: 048
     Dates: start: 20170502
  4. VIEKIRAX [Suspect]
     Active Substance: OMBITASVIR\PARITAPREVIR\RITONAVIR
     Indication: CHRONIC HEPATITIS C
     Dosage: 24 WEEKS TREATMENT, 2 TABS IN THE MORNING
     Route: 048
     Dates: start: 20170502
  5. EXVIERA [Suspect]
     Active Substance: DASABUVIR
     Indication: CHRONIC HEPATITIS C
     Dosage: 24 WEEKS TREATMENT, 1 TAB AM/1 TAB PM
     Route: 048
     Dates: start: 20170502

REACTIONS (5)
  - Abdominal pain [Recovered/Resolved]
  - Haemolytic anaemia [Recovering/Resolving]
  - Jaundice [Recovering/Resolving]
  - Fatigue [Not Recovered/Not Resolved]
  - Ocular icterus [Recovering/Resolving]

NARRATIVE: CASE EVENT DATE: 20170507
